FAERS Safety Report 7350713-7 (Version None)
Quarter: 2011Q1

REPORT INFORMATION
  Report Type: 
  Country: None (occurrence: None)
  Receive Date: 20110314
  Receipt Date: 20110228
  Transmission Date: 20110831
  Serious: Yes (Other)
  Sender: FDA-Public Use
  Company Number: IR-GENENTECH-314715

PATIENT

DRUGS (1)
  1. RITUXIMAB [Suspect]
     Indication: ANAEMIA HAEMOLYTIC AUTOIMMUNE
     Dosage: UNK
     Route: 065

REACTIONS (2)
  - CONVULSION [None]
  - MENINGITIS [None]
